FAERS Safety Report 21314340 (Version 1)
Quarter: 2022Q3

REPORT INFORMATION
  Report Type: Spontaneous
  Country: US (occurrence: None)
  Receive Date: 20220909
  Receipt Date: 20220909
  Transmission Date: 20221027
  Serious: No
  Sender: FDA-Public Use
  Company Number: US-ARIS GLOBAL-202110-1797

PATIENT
  Age: 61 Year
  Sex: Male

DRUGS (17)
  1. OXERVATE [Suspect]
     Active Substance: CENEGERMIN-BKBJ
     Indication: Neurotrophic keratopathy
     Route: 047
     Dates: start: 20210927
  2. MAGNESIUM\PASSIFLORA INCARNATA FLOWER\VALERIAN [Concomitant]
     Active Substance: MAGNESIUM\PASSIFLORA INCARNATA FLOWER\VALERIAN
  3. RETAINE MGD [Concomitant]
     Active Substance: LIGHT MINERAL OIL\MINERAL OIL
  4. VOLTAREN [Concomitant]
     Active Substance: DICLOFENAC SODIUM
  5. ALPRAZOLAM [Concomitant]
     Active Substance: ALPRAZOLAM
  6. LOSARTAN POTASSIUM [Concomitant]
     Active Substance: LOSARTAN POTASSIUM
  7. ALLOPURINOL [Concomitant]
     Active Substance: ALLOPURINOL
  8. CARVEDILOL [Concomitant]
     Active Substance: CARVEDILOL
  9. KLOR-CON M20 [Concomitant]
     Active Substance: POTASSIUM CHLORIDE
  10. GLYBURIDE [Concomitant]
     Active Substance: GLYBURIDE
  11. WARFARIN SODIUM [Concomitant]
     Active Substance: WARFARIN SODIUM
  12. VITAMIN D3 [Concomitant]
     Active Substance: CHOLECALCIFEROL
  13. VITAMIN B12 [Concomitant]
     Active Substance: CYANOCOBALAMIN
  14. MAGNESIUM OXIDE [Concomitant]
     Active Substance: MAGNESIUM OXIDE
  15. FUROSEMIDE [Concomitant]
     Active Substance: FUROSEMIDE
  16. EUTHYROX [Concomitant]
     Active Substance: LEVOTHYROXINE SODIUM
  17. TRULICITY [Concomitant]
     Active Substance: DULAGLUTIDE

REACTIONS (3)
  - Eye pain [Not Recovered/Not Resolved]
  - Eyelid pain [Unknown]
  - Periorbital pain [Unknown]
